FAERS Safety Report 16720526 (Version 2)
Quarter: 2019Q3

REPORT INFORMATION
  Report Type: Spontaneous
  Country: US (occurrence: US)
  Receive Date: 20190820
  Receipt Date: 20190921
  Transmission Date: 20191005
  Serious: Yes (Death)
  Sender: FDA-Public Use
  Company Number: US-ROCHE-2386459

PATIENT
  Age: 64 Year
  Sex: Male

DRUGS (4)
  1. AVASTIN [Suspect]
     Active Substance: BEVACIZUMAB
     Indication: COLORECTAL CANCER
     Dosage: 400/16 MG/ML
     Route: 042
     Dates: start: 20180207, end: 20180924
  2. CARBOPLATIN. [Concomitant]
     Active Substance: CARBOPLATIN
  3. ONDASETRON [ONDANSETRON] [Concomitant]
  4. AVASTIN [Suspect]
     Active Substance: BEVACIZUMAB
     Dosage: 100/4 MG/ML
     Route: 042
     Dates: start: 20180207, end: 20180924

REACTIONS (1)
  - Death [Fatal]
